FAERS Safety Report 13618462 (Version 1)
Quarter: 2017Q2

REPORT INFORMATION
  Report Type: Spontaneous
  Country: US (occurrence: US)
  Receive Date: 20170606
  Receipt Date: 20170606
  Transmission Date: 20170830
  Serious: No
  Sender: FDA-Public Use
  Company Number: US-LEXICON PHARMACEUTICALS, INC-17-1606-00147

PATIENT
  Age: 80 Year
  Sex: Female

DRUGS (5)
  1. TELOTRISTAT ETHYL [Suspect]
     Active Substance: TELOTRISTAT ETHYL
     Indication: CARCINOID SYNDROME
     Route: 048
     Dates: start: 20170415
  2. LASIX [Concomitant]
     Active Substance: FUROSEMIDE
  3. SOMATULINE DEPOT [Concomitant]
     Active Substance: LANREOTIDE ACETATE
  4. AFINITOR [Concomitant]
     Active Substance: EVEROLIMUS
  5. HYDROCORTISONE. [Concomitant]
     Active Substance: HYDROCORTISONE

REACTIONS (1)
  - Hepatic pain [Not Recovered/Not Resolved]

NARRATIVE: CASE EVENT DATE: 201604
